FAERS Safety Report 9170125 (Version 3)
Quarter: 2013Q2

REPORT INFORMATION
  Report Type: Spontaneous
  Country: US (occurrence: None)
  Receive Date: 20130308
  Receipt Date: 20130403
  Transmission Date: 20140414
  Serious: Yes (Hospitalization)
  Sender: FDA-Public Use
  Company Number: UTC-029797

PATIENT
  Age: 3 Year
  Sex: Female
  Weight: 12.27 kg

DRUGS (3)
  1. REMODULIN [Suspect]
     Indication: COR PULMONALE CHRONIC
     Dosage: 46.08 UG/KG (0.032 UG/KG, 1 IN 1 MIN), SUBCUTANEOUS
     Route: 058
     Dates: start: 20121018, end: 20130224
  2. REVATIO [Concomitant]
  3. TRACLEER [Concomitant]

REACTIONS (8)
  - Syncope [None]
  - Gastrooesophageal reflux disease [None]
  - Vomiting [None]
  - Presyncope [None]
  - Tachycardia [None]
  - Hyperhidrosis [None]
  - Agitation [None]
  - Weight increased [None]
